FAERS Safety Report 7907025-X (Version None)
Quarter: 2011Q4

REPORT INFORMATION
  Report Type: 
  Country: None (occurrence: None)
  Receive Date: 20111110
  Receipt Date: 20111104
  Transmission Date: 20120403
  Serious: Yes (Other)
  Sender: FDA-Public Use
  Company Number: US-MERCK-1111USA00870

PATIENT

DRUGS (1)
  1. JANUMET [Suspect]
     Route: 048

REACTIONS (1)
  - DEAFNESS [None]
